FAERS Safety Report 25302352 (Version 2)
Quarter: 2025Q2

REPORT INFORMATION
  Report Type: Spontaneous
  Country: NL (occurrence: NL)
  Receive Date: 20250512
  Receipt Date: 20250514
  Transmission Date: 20250716
  Serious: Yes (Life-Threatening, Hospitalization)
  Sender: ABBVIE
  Company Number: None

PATIENT
  Age: 45 Year
  Sex: Female
  Weight: 50 kg

DRUGS (1)
  1. RINVOQ [Suspect]
     Active Substance: UPADACITINIB
     Indication: Eczema
     Dosage: 1X A DAY 1 PIECE?UPADACITINIB TABLET MGA 30MG / RINVOQ TABLET MVA 30MG
     Route: 048
     Dates: start: 20240412, end: 20240909

REACTIONS (1)
  - Acute myocardial infarction [Recovering/Resolving]
